FAERS Safety Report 11308857 (Version 1)
Quarter: 2015Q3

REPORT INFORMATION
  Report Type: Spontaneous
  Country: FR (occurrence: FR)
  Receive Date: 20150724
  Receipt Date: 20150724
  Transmission Date: 20151125
  Serious: Yes (Life-Threatening, Hospitalization, Other)
  Sender: FDA-Public Use
  Company Number: FR-TEVA-580190ISR

PATIENT
  Age: 68 Year
  Sex: Female
  Weight: 53 kg

DRUGS (35)
  1. VINCRISTINE TEVA 0.1% (1 MG/1ML) [Suspect]
     Active Substance: VINCRISTINE
     Dosage: FOURTH CYCLE OF CHEMOTHERAPY PROTOCOL R-CHOP
     Route: 042
     Dates: start: 20141201, end: 20141201
  2. VINCRISTINE TEVA 0.1% (1 MG/1ML) [Suspect]
     Active Substance: VINCRISTINE
     Dosage: SEVENTH CYCLE OF CHEMOTHERAPY PROTOCOL R-CHOP
     Route: 042
     Dates: start: 20150202, end: 20150202
  3. ENDOXAN 1000 MG [Suspect]
     Active Substance: CYCLOPHOSPHAMIDE
     Dosage: SIXTH CYCLE OF CHEMOTHERAPY PROTOCOL R-CHOP
     Route: 042
     Dates: start: 20150112, end: 20150112
  4. GRANOCYTE [Concomitant]
     Active Substance: LENOGRASTIM
     Dosage: REGULAR ADMINISTRATIONS SINCE THE BEGINNING OF CYCLES
  5. ENDOXAN 1000 MG [Suspect]
     Active Substance: CYCLOPHOSPHAMIDE
     Dosage: SECOND CYCLE OF CHEMOTHERAPY PROTOCOL R-CHOP
     Route: 042
     Dates: start: 20141020, end: 20141020
  6. ADRIBLASTINE 50 MG [Suspect]
     Active Substance: DOXORUBICIN
     Indication: DIFFUSE LARGE B-CELL LYMPHOMA
     Dosage: FORM: POWDER FOR SOLUTION FOR INFUSION. FIRST CYCLE OF CHEMOTHERAPY PROTOCOL R-CHOP
     Route: 042
     Dates: start: 20140929, end: 20140929
  7. ADRIBLASTINE 50 MG [Suspect]
     Active Substance: DOXORUBICIN
     Dosage: FORM: POWDER FOR SOLUTION FOR INFUSION. THIRD CYCLE OF CHEMOTHERAPY PROTOCOL R-CHOP
     Route: 042
     Dates: start: 20141110, end: 20141110
  8. VINCRISTINE TEVA 0.1% (1 MG/1ML) [Suspect]
     Active Substance: VINCRISTINE
     Dosage: THIRD CYCLE OF CHEMOTHERAPY PROTOCOL R-CHOP
     Route: 042
     Dates: start: 20141110, end: 20141110
  9. VINCRISTINE TEVA 0.1% (1 MG/1ML) [Suspect]
     Active Substance: VINCRISTINE
     Dosage: FIFTH CYCLE OF CHEMOTHERAPY PROTOCOL R-CHOP
     Route: 042
     Dates: start: 20141222, end: 20141222
  10. MABTHERA [Suspect]
     Active Substance: RITUXIMAB
     Dosage: SECOND CYCLE OF CHEMOTHERAPY PROTOCOL R-CHOP
     Route: 042
     Dates: start: 20141020, end: 20141020
  11. MABTHERA [Suspect]
     Active Substance: RITUXIMAB
     Dosage: FIFTH CYCLE OF CHEMOTHERAPY PROTOCOL R-CHOP
     Route: 042
     Dates: start: 20141222, end: 20141222
  12. MABTHERA [Suspect]
     Active Substance: RITUXIMAB
     Dosage: EIGHTH CYCLE OF CHEMOTHERAPY PROTOCOL R-CHOP
     Route: 042
     Dates: start: 20150223, end: 20150223
  13. ENDOXAN 1000 MG [Suspect]
     Active Substance: CYCLOPHOSPHAMIDE
     Dosage: FIFTH CYCLE OF CHEMOTHERAPY PROTOCOL R-CHOP
     Route: 042
     Dates: start: 20141222, end: 20141222
  14. ADRIBLASTINE 50 MG [Suspect]
     Active Substance: DOXORUBICIN
     Dosage: FORM: POWDER FOR SOLUTION FOR INFUSION. SEVENTH CYCLE OF CHEMOTHERAPY PROTOCOL R-CHOP
     Route: 042
     Dates: start: 20150202, end: 20150202
  15. BACTRIM [Suspect]
     Active Substance: SULFAMETHOXAZOLE\TRIMETHOPRIM
     Indication: ANTIBIOTIC PROPHYLAXIS
     Route: 048
     Dates: start: 201410, end: 20150520
  16. VINCRISTINE TEVA 0.1% (1 MG/1ML) [Suspect]
     Active Substance: VINCRISTINE
     Dosage: SECOND CYCLE OF CHEMOTHERAPY PROTOCOL R-CHOP
     Route: 042
     Dates: start: 20141020, end: 20141020
  17. VINCRISTINE TEVA 0.1% (1 MG/1ML) [Suspect]
     Active Substance: VINCRISTINE
     Indication: DIFFUSE LARGE B-CELL LYMPHOMA
     Dosage: FIRST CYCLE OF CHEMOTHERAPY PROTOCOL R-CHOP
     Route: 042
     Dates: start: 20140929, end: 20140929
  18. VINCRISTINE TEVA 0.1% (1 MG/1ML) [Suspect]
     Active Substance: VINCRISTINE
     Dosage: SIXTH CYCLE OF CHEMOTHERAPY PROTOCOL R-CHOP
     Route: 042
     Dates: start: 20150112, end: 20150112
  19. VINCRISTINE TEVA 0.1% (1 MG/1ML) [Suspect]
     Active Substance: VINCRISTINE
     Dosage: EIGHTH CYCLE OF CHEMOTHERAPY PROTOCOL R-CHOP
     Route: 042
     Dates: start: 20150223, end: 20150223
  20. MABTHERA [Suspect]
     Active Substance: RITUXIMAB
     Dosage: THIRD CYCLE OF CHEMOTHERAPY PROTOCOL R-CHOP
     Route: 042
     Dates: start: 20141110, end: 20141110
  21. ENDOXAN 1000 MG [Suspect]
     Active Substance: CYCLOPHOSPHAMIDE
     Dosage: FOURTH CYCLE OF CHEMOTHERAPY PROTOCOL R-CHOP
     Route: 042
     Dates: start: 20141201, end: 20141201
  22. ENDOXAN 1000 MG [Suspect]
     Active Substance: CYCLOPHOSPHAMIDE
     Dosage: EIGHTH CYCLE OF CHEMOTHERAPY PROTOCOL R-CHOP
     Route: 042
     Dates: start: 20150223, end: 20150223
  23. ADRIBLASTINE 50 MG [Suspect]
     Active Substance: DOXORUBICIN
     Dosage: FORM: POWDER FOR SOLUTION FOR INFUSION. SIXTH CYCLE OF CHEMOTHERAPY PROTOCOL R-CHOP
     Route: 042
     Dates: start: 20150112, end: 20150112
  24. MABTHERA [Suspect]
     Active Substance: RITUXIMAB
     Dosage: FOURTH CYCLE OF CHEMOTHERAPY PROTOCOL R-CHOP
     Route: 042
     Dates: start: 20141201, end: 20141201
  25. ENDOXAN 1000 MG [Suspect]
     Active Substance: CYCLOPHOSPHAMIDE
     Dosage: THIRD CYCLE OF CHEMOTHERAPY PROTOCOL R-CHOP
     Route: 042
     Dates: start: 20141110, end: 20141110
  26. ADRIBLASTINE 50 MG [Suspect]
     Active Substance: DOXORUBICIN
     Dosage: FORM: POWDER FOR SOLUTION FOR INFUSION. SECOND CYCLE OF CHEMOTHERAPY PROTOCOL R-CHOP
     Route: 042
     Dates: start: 20141020, end: 20141020
  27. ADRIBLASTINE 50 MG [Suspect]
     Active Substance: DOXORUBICIN
     Dosage: FORM: POWDER FOR SOLUTION FOR INFUSION. FOURTH CYCLE OF CHEMOTHERAPY PROTOCOL R-CHOP
     Route: 042
     Dates: start: 20141201, end: 20141201
  28. ADRIBLASTINE 50 MG [Suspect]
     Active Substance: DOXORUBICIN
     Dosage: FORM: POWDER FOR SOLUTION FOR INFUSION. FIFTH CYCLE OF CHEMOTHERAPY PROTOCOL R-CHOP
     Route: 042
     Dates: start: 20141222, end: 20141222
  29. MABTHERA [Suspect]
     Active Substance: RITUXIMAB
     Dosage: SIXTH CYCLE OF CHEMOTHERAPY PROTOCOL R-CHOP
     Route: 042
     Dates: start: 20150112, end: 20150112
  30. ENDOXAN 1000 MG [Suspect]
     Active Substance: CYCLOPHOSPHAMIDE
     Indication: DIFFUSE LARGE B-CELL LYMPHOMA
     Dosage: FIRST CYCLE OF CHEMOTHERAPY PROTOCOL R-CHOP
     Route: 042
     Dates: start: 20140929, end: 20140929
  31. ENDOXAN 1000 MG [Suspect]
     Active Substance: CYCLOPHOSPHAMIDE
     Dosage: SEVENTH CYCLE OF CHEMOTHERAPY PROTOCOL R-CHOP
     Route: 042
     Dates: start: 20150202, end: 20150202
  32. MABTHERA [Suspect]
     Active Substance: RITUXIMAB
     Indication: DIFFUSE LARGE B-CELL LYMPHOMA
     Dosage: FIRST CYCLE OF CHEMOTHERAPY PROTOCOL R-CHOP
     Route: 042
     Dates: start: 20140929, end: 20140929
  33. MABTHERA [Suspect]
     Active Substance: RITUXIMAB
     Dosage: SEVENTH CYCLE OF CHEMOTHERAPY PROTOCOL R-CHOP
     Route: 042
     Dates: start: 20150202, end: 20150202
  34. ADRIBLASTINE 50 MG [Suspect]
     Active Substance: DOXORUBICIN
     Dosage: FORM: POWDER FOR SOLUTION FOR INFUSION. EIGHTH CYCLE OF CHEMOTHERAPY PROTOCOL R-CHOP
     Route: 042
     Dates: start: 20150223, end: 20150223
  35. LEDERFOLINE [Concomitant]
     Active Substance: LEUCOVORIN CALCIUM

REACTIONS (5)
  - Cytopenia [Unknown]
  - Tachycardia [Unknown]
  - Leukopenia [Recovering/Resolving]
  - Pyrexia [Unknown]
  - Agranulocytosis [Recovering/Resolving]

NARRATIVE: CASE EVENT DATE: 20150325
